FAERS Safety Report 5973731-X (Version None)
Quarter: 2008Q4

REPORT INFORMATION
  Report Type: 
  Country: None (occurrence: None)
  Receive Date: 20081201
  Receipt Date: 20081120
  Transmission Date: 20090506
  Serious: Yes (Hospitalization, Other)
  Sender: FDA-Public Use
  Company Number: CH-B.I. PHARMACEUTICALS,INC./RIDGEFIELD-2008-DE-07106GD

PATIENT
  Age: 74 Year
  Sex: Male

DRUGS (4)
  1. PRAMIPEXOLE DIHYDROCHLORIDE [Suspect]
     Indication: PARKINSON'S DISEASE
     Dosage: 4MG
  2. AMANTADINE HCL [Suspect]
     Indication: PARKINSON'S DISEASE
     Dosage: 200MG
  3. LEVODOPA [Suspect]
     Indication: PARKINSON'S DISEASE
     Dosage: 400MG
  4. OLANZAPINE [Concomitant]
     Indication: SCHIZOPHRENIA, PARANOID TYPE
     Dosage: 5MG

REACTIONS (4)
  - DELUSION [None]
  - DYSKINESIA [None]
  - ON AND OFF PHENOMENON [None]
  - PSYCHOTIC DISORDER [None]
